FAERS Safety Report 25231459 (Version 1)
Quarter: 2025Q2

REPORT INFORMATION
  Report Type: Report from Study
  Country: KR (occurrence: KR)
  Receive Date: 20250423
  Receipt Date: 20250423
  Transmission Date: 20250717
  Serious: Yes (Other)
  Sender: GUERBET
  Company Number: KR-GUERBET / KOREA-KR-20250016

PATIENT
  Age: 50 Year
  Sex: Male

DRUGS (5)
  1. LIPIODOL [Suspect]
     Active Substance: ETHIODIZED OIL
     Indication: Transcatheter arterial chemoembolisation
     Dosage: EMULSION OF AN UNKNOWN DOSE OF (2 MG/KG OF BODY WEIGHT) OF CISPLATIN AND LIPIODOL
     Route: 013
  2. CISPLATIN [Suspect]
     Active Substance: CISPLATIN
     Indication: Transcatheter arterial chemoembolisation
     Route: 013
  3. GELATIN [Suspect]
     Active Substance: GELATIN
     Indication: Transcatheter arterial chemoembolisation
     Route: 013
  4. SODIUM CHLORIDE [Concomitant]
     Active Substance: SODIUM CHLORIDE
     Indication: Transcatheter arterial chemoembolisation
     Route: 013
  5. VISIPAQUE [Concomitant]
     Active Substance: IODIXANOL
     Indication: Transcatheter arterial chemoembolisation
     Route: 013

REACTIONS (1)
  - Hepatic artery occlusion [Unknown]
